FAERS Safety Report 11950370 (Version 1)
Quarter: 2016Q1

REPORT INFORMATION
  Report Type: Spontaneous
  Country: US (occurrence: US)
  Receive Date: 20160126
  Receipt Date: 20160126
  Transmission Date: 20160526
  Serious: No
  Sender: FDA-Public Use
  Company Number: US-ENDO PHARMACEUTICALS INC.-2015-001356

PATIENT
  Age: 62 Year
  Sex: Male
  Weight: 79.9 kg

DRUGS (6)
  1. METHYLPREDNISOLONE TABLETS 4MG [Suspect]
     Active Substance: METHYLPREDNISOLONE
     Route: 048
     Dates: start: 20150607, end: 20150608
  2. METHYLPREDNISOLONE TABLETS 4MG [Suspect]
     Active Substance: METHYLPREDNISOLONE
     Route: 048
     Dates: start: 20150604, end: 20150605
  3. METHYLPREDNISOLONE TABLETS 4MG [Suspect]
     Active Substance: METHYLPREDNISOLONE
     Route: 048
     Dates: start: 20150605, end: 20150606
  4. METHYLPREDNISOLONE TABLETS 4MG [Suspect]
     Active Substance: METHYLPREDNISOLONE
     Indication: INFLAMMATION
     Route: 048
     Dates: start: 20150603, end: 20150604
  5. METHYLPREDNISOLONE TABLETS 4MG [Suspect]
     Active Substance: METHYLPREDNISOLONE
     Route: 048
     Dates: start: 20150608, end: 20150609
  6. METHYLPREDNISOLONE TABLETS 4MG [Suspect]
     Active Substance: METHYLPREDNISOLONE
     Route: 048
     Dates: start: 20150606, end: 20150607

REACTIONS (1)
  - Herpes zoster [Not Recovered/Not Resolved]

NARRATIVE: CASE EVENT DATE: 20150605
